FAERS Safety Report 13681858 (Version 1)
Quarter: 2017Q2

REPORT INFORMATION
  Report Type: Spontaneous
  Country: US (occurrence: US)
  Receive Date: 20170623
  Receipt Date: 20170623
  Transmission Date: 20170830
  Serious: No
  Sender: FDA-Public Use
  Company Number: US-IPSEN BIOPHARMACEUTICALS, INC.-2016-03198

PATIENT
  Age: 35 Year
  Sex: Female
  Weight: 90 kg

DRUGS (2)
  1. DYSPORT [Suspect]
     Active Substance: ABOBOTULINUMTOXINA
     Indication: PRODUCT USE IN UNAPPROVED INDICATION
  2. DYSPORT [Suspect]
     Active Substance: ABOBOTULINUMTOXINA
     Indication: SKIN WRINKLING
     Dosage: 42 UNITS
     Route: 030
     Dates: start: 201604, end: 201604

REACTIONS (1)
  - Injection site pallor [Recovered/Resolved]

NARRATIVE: CASE EVENT DATE: 20160412
